FAERS Safety Report 10007504 (Version 2)
Quarter: 2014Q2

REPORT INFORMATION
  Report Type: Report from Study
  Country: US (occurrence: US)
  Receive Date: 20140313
  Receipt Date: 20140407
  Transmission Date: 20141212
  Serious: Yes (Other)
  Sender: FDA-Public Use
  Company Number: US-BAXTER-2014BAX011642

PATIENT
  Age: 73 Year
  Sex: Female
  Weight: 90.72 kg

DRUGS (12)
  1. GAMMAGARD LIQUID [Suspect]
     Indication: IMMUNODEFICIENCY
     Route: 042
     Dates: start: 20140227, end: 20140227
  2. GAMMAGARD LIQUID [Suspect]
     Route: 042
     Dates: start: 201211
  3. TOPROL [Concomitant]
     Indication: HYPERTENSION
     Route: 048
  4. SINGULAIR [Concomitant]
     Indication: ASTHMA
     Route: 048
  5. ALLEGRA [Concomitant]
     Indication: HYPERSENSITIVITY
     Route: 048
  6. TRIAMTERENE/HCTZ [Concomitant]
     Indication: HYPERTENSION
     Dosage: 37.5 MG/25 MG
     Route: 048
  7. LYRICA [Concomitant]
     Indication: NEURALGIA
     Route: 048
  8. REQUIP [Concomitant]
     Indication: PRODUCT USED FOR UNKNOWN INDICATION
     Route: 048
  9. VENTOLIN [Concomitant]
     Indication: ASTHMA
     Route: 055
  10. DUROGESIC [Concomitant]
     Indication: PAIN
     Route: 062
  11. LISINOPRIL/HCTZ [Concomitant]
     Indication: HYPERTENSION
     Dosage: 20 MG/12.5 MG
     Route: 048
  12. PREVACID [Concomitant]
     Indication: GASTROOESOPHAGEAL REFLUX DISEASE
     Route: 048

REACTIONS (3)
  - Seizure like phenomena [Recovered/Resolved]
  - Fatigue [Not Recovered/Not Resolved]
  - Muscle spasms [Not Recovered/Not Resolved]
